FAERS Safety Report 24609552 (Version 1)
Quarter: 2024Q4

REPORT INFORMATION
  Report Type: Spontaneous
  Country: RO (occurrence: RO)
  Receive Date: 20241112
  Receipt Date: 20241112
  Transmission Date: 20250115
  Serious: Yes (Hospitalization)
  Sender: FRESENIUS KABI
  Company Number: None

PATIENT
  Age: 69 Year
  Sex: Male
  Weight: 88 kg

DRUGS (4)
  1. OXALIPLATIN [Suspect]
     Active Substance: OXALIPLATIN
     Indication: Colorectal cancer stage IV
     Dosage: 150 MG
     Route: 042
     Dates: start: 20241022, end: 20241022
  2. Oyavas 400 mg/16 ml [Concomitant]
     Indication: Colorectal cancer stage IV
     Dosage: 400 MG
     Dates: start: 20241022, end: 20241022
  3. METOPROLOL [Concomitant]
     Active Substance: METOPROLOL
     Indication: Product used for unknown indication
  4. Atacand 8 mg [Concomitant]
     Indication: Product used for unknown indication

REACTIONS (6)
  - Hypersensitivity [Recovering/Resolving]
  - Vision blurred [Recovering/Resolving]
  - Bradycardia [Recovering/Resolving]
  - Hypotension [Recovering/Resolving]
  - Pallor [Recovering/Resolving]
  - Abdominal pain upper [Recovering/Resolving]

NARRATIVE: CASE EVENT DATE: 20241022
